FAERS Safety Report 17402000 (Version 1)
Quarter: 2020Q1

REPORT INFORMATION
  Report Type: Spontaneous
  Country: PL (occurrence: PL)
  Receive Date: 20200211
  Receipt Date: 20200211
  Transmission Date: 20200409
  Serious: Yes (Other)
  Sender: FDA-Public Use
  Company Number: PL-OXFORD PHARMACEUTICALS, LLC-2020OXF00026

PATIENT
  Age: 41 Year
  Sex: Male

DRUGS (5)
  1. POTASSIUM SALTS [Concomitant]
     Active Substance: UNSPECIFIED INGREDIENT
     Route: 065
  2. TRAZODONE [Suspect]
     Active Substance: TRAZODONE HYDROCHLORIDE
     Route: 065
  3. WARFARIN [Suspect]
     Active Substance: WARFARIN
     Route: 065
  4. BISOPROLOL [Concomitant]
     Active Substance: BISOPROLOL
     Route: 065
  5. MAGNESIUM [Concomitant]
     Active Substance: MAGNESIUM
     Route: 065

REACTIONS (2)
  - Peripheral artery thrombosis [Unknown]
  - Drug interaction [Unknown]
